FAERS Safety Report 6389517-0 (Version None)
Quarter: 2009Q4

REPORT INFORMATION
  Report Type: 
  Country: None (occurrence: None)
  Receive Date: 20091005
  Receipt Date: 20091005
  Transmission Date: 20100525
  Serious: Yes (Death, Other)
  Sender: FDA-Public Use
  Company Number: None

PATIENT
  Age: 23 Year
  Sex: Male
  Weight: 53 kg

DRUGS (1)
  1. RITUXAN [Suspect]

REACTIONS (1)
  - LEUKOENCEPHALOPATHY [None]
